FAERS Safety Report 5270013-9 (Version None)
Quarter: 2007Q1

REPORT INFORMATION
  Report Type: 
  Country: None (occurrence: None)
  Receive Date: 20061213
  Receipt Date: 20030828
  Transmission Date: 20070707
  Serious: Yes (Other)
  Sender: FDA-Public Use
  Company Number: 2003UW10906

PATIENT
  Age: 62 Year
  Sex: Male

DRUGS (1)
  1. IRESSA [Suspect]
     Indication: LUNG CANCER METASTATIC
     Dosage: 250 MG QD PO
     Route: 048
     Dates: start: 20030701

REACTIONS (2)
  - DYSKINESIA [None]
  - OEDEMA PERIPHERAL [None]
